FAERS Safety Report 15665166 (Version 1)
Quarter: 2018Q4

REPORT INFORMATION
  Report Type: Report from Study
  Country: SE (occurrence: SE)
  Receive Date: 20181128
  Receipt Date: 20181128
  Transmission Date: 20190205
  Serious: Yes (Death, Hospitalization)
  Sender: FDA-Public Use
  Company Number: SE-SAKK-2018SA323501AA

PATIENT
  Age: 42 Year
  Sex: Female

DRUGS (2)
  1. EPIRUBICIN [Suspect]
     Active Substance: EPIRUBICIN
     Indication: BREAST CANCER
     Dosage: 75 MG/M2, Q3W, FIRST COURSE
     Route: 042
  2. DOCETAXEL. [Suspect]
     Active Substance: DOCETAXEL
     Indication: BREAST CANCER
     Dosage: 75 MG/M2, Q3W, FIRST COURSE
     Route: 042

REACTIONS (13)
  - Ischaemia [Fatal]
  - Septic shock [Fatal]
  - Diarrhoea [Fatal]
  - Fatigue [Fatal]
  - Abdominal pain [Fatal]
  - Intestinal perforation [Fatal]
  - Nausea [Fatal]
  - Gastrointestinal necrosis [Fatal]
  - Enterocolitis [Fatal]
  - Colitis [Fatal]
  - Cardiac arrest [Fatal]
  - Toxicity to various agents [Fatal]
  - Febrile neutropenia [Fatal]
